FAERS Safety Report 19719886 (Version 1)
Quarter: 2021Q3

REPORT INFORMATION
  Report Type: Spontaneous
  Country: US (occurrence: US)
  Receive Date: 20210819
  Receipt Date: 20210819
  Transmission Date: 20211014
  Serious: No
  Sender: FDA-Public Use
  Company Number: None

PATIENT
  Age: 79 Year
  Sex: Male
  Weight: 131 kg

DRUGS (2)
  1. LISINOPRIL (LISINOPRIL 10MG TAB) [Suspect]
     Active Substance: LISINOPRIL
     Indication: HYPERTENSION
     Route: 048
     Dates: start: 20110628, end: 20210522
  2. AMOXICILLIN/CLAVULANATE (AMOXICILLIN TRIHYDRATE 875MG/CLAVULANATE K [Suspect]
     Active Substance: AMOXICILLIN\CLAVULANATE POTASSIUM
     Indication: INFECTION
     Dosage: ?          OTHER DOSE:875/125 MG;?
     Route: 048
     Dates: start: 20210521, end: 20210522

REACTIONS (9)
  - Mast cell activation syndrome [None]
  - Anaphylactic reaction [None]
  - Laryngospasm [None]
  - Pruritus [None]
  - Swelling face [None]
  - Rash [None]
  - Hypotension [None]
  - Urticaria [None]
  - Angioedema [None]

NARRATIVE: CASE EVENT DATE: 20210522
